FAERS Safety Report 19948311 (Version 2)
Quarter: 2022Q3

REPORT INFORMATION
  Report Type: Spontaneous
  Country: US (occurrence: US)
  Receive Date: 20211012
  Receipt Date: 20220908
  Transmission Date: 20221026
  Serious: No
  Sender: FDA-Public Use
  Company Number: US-PFIZER INC-202101285125

PATIENT
  Age: 58 Year
  Sex: Female
  Weight: 84.37 kg

DRUGS (2)
  1. SUCRALFATE [Suspect]
     Active Substance: SUCRALFATE
     Dosage: UNK
  2. PANTOPRAZOLE [Suspect]
     Active Substance: PANTOPRAZOLE
     Dosage: UNK

REACTIONS (1)
  - Drug intolerance [Unknown]
